FAERS Safety Report 16229569 (Version 2)
Quarter: 2019Q2

REPORT INFORMATION
  Report Type: Spontaneous
  Country: US (occurrence: US)
  Receive Date: 20190423
  Receipt Date: 20190427
  Transmission Date: 20190711
  Serious: Yes (Hospitalization)
  Sender: FDA-Public Use
  Company Number: US-ALKERMES INC.-ALK-2019-002099

PATIENT
  Age: 27 Year
  Sex: Male

DRUGS (1)
  1. VIVITROL [Suspect]
     Active Substance: NALTREXONE
     Indication: DRUG DEPENDENCE
     Dosage: 380 MG, QMO
     Route: 030
     Dates: start: 201709

REACTIONS (6)
  - Pyrexia [Unknown]
  - Lung abscess [Unknown]
  - Drug abuse [Unknown]
  - Pneumonia [Unknown]
  - Drug dependence [Unknown]
  - Cough [Unknown]

NARRATIVE: CASE EVENT DATE: 2019
